FAERS Safety Report 18867311 (Version 2)
Quarter: 2021Q1

REPORT INFORMATION
  Report Type: Spontaneous
  Country: DE (occurrence: DE)
  Receive Date: 20210209
  Receipt Date: 20210217
  Transmission Date: 20210420
  Serious: Yes (Other)
  Sender: FDA-Public Use
  Company Number: DE-TEVA-2021-DE-1878938

PATIENT
  Age: 74 Year
  Sex: Male
  Weight: 145 kg

DRUGS (6)
  1. NEBIVOLOL?ACTAVIS 5 MG TABLETTEN [Suspect]
     Active Substance: NEBIVOLOL
     Dosage: 1.25 MILLIGRAM DAILY; DOSE INCREASED
     Route: 048
     Dates: start: 2015
  2. HCT DEXCEL [Concomitant]
     Active Substance: HYDROCHLOROTHIAZIDE
     Indication: HYPERTENSION
     Dosage: 25 MILLIGRAM DAILY; 25 MG ONCE DAILY
     Route: 065
     Dates: start: 2015
  3. ELIQUIS [Concomitant]
     Active Substance: APIXABAN
     Indication: HYPERTENSION
  4. NEBIVOLOL?ACTAVIS 5 MG TABLETTEN [Suspect]
     Active Substance: NEBIVOLOL
     Dosage: 3.75 MILLIGRAM DAILY; ONGOING
     Route: 048
     Dates: start: 2015
  5. ELIQUIS [Concomitant]
     Active Substance: APIXABAN
     Indication: ANTICOAGULANT THERAPY
     Dosage: 10 MILLIGRAM/MILLILITERS DAILY; 2X5 MG PER DAY
     Route: 065
     Dates: start: 2015
  6. NEBIVOLOL?ACTAVIS 5 MG TABLETTEN [Suspect]
     Active Substance: NEBIVOLOL
     Indication: HYPERTENSION
     Dosage: 5 MILLIGRAM DAILY; DOSE REDUCED
     Route: 048
     Dates: start: 2015

REACTIONS (2)
  - Heart rate decreased [Recovering/Resolving]
  - Atrial fibrillation [Recovering/Resolving]

NARRATIVE: CASE EVENT DATE: 20201216
